FAERS Safety Report 7308377-4 (Version None)
Quarter: 2011Q1

REPORT INFORMATION
  Report Type: 
  Country: None (occurrence: None)
  Receive Date: 20110223
  Receipt Date: 20110206
  Transmission Date: 20110831
  Serious: Yes (Death)
  Sender: FDA-Public Use
  Company Number: B0701680A

PATIENT
  Age: 56 Year
  Sex: Female

DRUGS (4)
  1. NAVELBINE [Concomitant]
  2. DOCETAXEL [Concomitant]
  3. UNKNOWN [Concomitant]
  4. TYKERB [Suspect]
     Indication: PRODUCT USED FOR UNKNOWN INDICATION
     Route: 065
     Dates: start: 20080701

REACTIONS (5)
  - DISEASE PROGRESSION [None]
  - DIARRHOEA [None]
  - HEADACHE [None]
  - METASTASES TO CENTRAL NERVOUS SYSTEM [None]
  - NEOPLASM MALIGNANT [None]
